FAERS Safety Report 9347914 (Version 1)
Quarter: 2013Q2

REPORT INFORMATION
  Report Type: Spontaneous
  Country: US (occurrence: None)
  Receive Date: 20130612
  Receipt Date: 20130612
  Transmission Date: 20140414
  Serious: Yes (Hospitalization)
  Sender: FDA-Public Use
  Company Number: None

PATIENT
  Age: 65 Year
  Sex: Male
  Weight: 122.47 kg

DRUGS (1)
  1. XARELTO 20 MG [Suspect]
     Route: 048
     Dates: start: 20130131, end: 20130601

REACTIONS (2)
  - Stomatitis [None]
  - Mouth haemorrhage [None]
